FAERS Safety Report 4930785-7 (Version None)
Quarter: 2006Q1

REPORT INFORMATION
  Report Type: 
  Country: None (occurrence: None)
  Receive Date: 20060227
  Receipt Date: 20060214
  Transmission Date: 20060701
  Serious: Yes (Hospitalization, Disabling, Other)
  Sender: FDA-Public Use
  Company Number: 2003117708

PATIENT
  Age: 44 Year
  Sex: Female
  Weight: 83 kg

DRUGS (7)
  1. RELPAX [Suspect]
     Indication: MIGRAINE
     Dosage: 40 MG (ONCE), ORAL
     Route: 048
     Dates: start: 20031107, end: 20031107
  2. IMIGRANE (SUMATRIPTAN SUCCINATE) [Suspect]
     Indication: MIGRAINE
     Dosage: 20 MG (DAILY), NASAL
     Route: 045
     Dates: start: 20031223, end: 20031223
  3. LEVOTHYROXINE SODIUM [Suspect]
     Indication: HYPOTHYROIDISM
     Dosage: 75 MCG (DAILY), ORAL
     Route: 048
     Dates: start: 20030501
  4. VALIUM [Suspect]
     Indication: ANXIETY
     Dosage: 10 MG (BID), ORAL
     Route: 048
     Dates: start: 20030501
  5. DILTIAZEM HCL [Suspect]
     Indication: ILL-DEFINED DISORDER
     Dosage: 180 MG (BID), ORAL
     Route: 048
     Dates: start: 20030501
  6. PROZAC [Suspect]
     Indication: DYSTHYMIC DISORDER
     Dosage: 40 MG (BID), ORAL
     Route: 048
     Dates: start: 20030501
  7. DRIPTANE (OXYBUTYNIN HYDROCHLORIDE) [Concomitant]

REACTIONS (4)
  - AMAUROSIS [None]
  - AMNESIA [None]
  - MEMORY IMPAIRMENT [None]
  - TRANSIENT ISCHAEMIC ATTACK [None]
